FAERS Safety Report 4285830-1 (Version None)
Quarter: 2004Q1

REPORT INFORMATION
  Report Type: 
  Country: None (occurrence: None)
  Receive Date: 20040205
  Receipt Date: 20031216
  Transmission Date: 20041129
  Serious: Yes (Disabling)
  Sender: FDA-Public Use
  Company Number: US-BRISTOL-MYERS SQUIBB COMPANY-12463808

PATIENT
  Sex: Female

DRUGS (2)
  1. AVAPRO [Suspect]
     Dosage: TEMPORARILY DISCONTINUED PRODUCT FOR 2 WEEKS; RESUMED + DOSE INCREASED FROM 75MG TO 150MG.
     Route: 048
     Dates: start: 20030101
  2. PRAVACHOL [Suspect]
     Indication: HYPERCHOLESTEROLAEMIA

REACTIONS (5)
  - BUTTOCK PAIN [None]
  - DIFFICULTY IN WALKING [None]
  - GROIN PAIN [None]
  - MYALGIA [None]
  - POLYMYALGIA RHEUMATICA [None]
